FAERS Safety Report 13580103 (Version 1)
Quarter: 2017Q2

REPORT INFORMATION
  Report Type: Spontaneous
  Country: US (occurrence: US)
  Receive Date: 20170525
  Receipt Date: 20170525
  Transmission Date: 20170830
  Serious: No
  Sender: FDA-Public Use
  Company Number: US-PURDUE-USA-2017-0136919

PATIENT
  Sex: Male
  Weight: 79.37 kg

DRUGS (2)
  1. HYSINGLA ER [Suspect]
     Active Substance: HYDROCODONE BITARTRATE
     Dosage: 30 UNK, UNK
     Route: 048
  2. HYSINGLA ER [Suspect]
     Active Substance: HYDROCODONE BITARTRATE
     Indication: PAIN
     Dosage: 40 MG, Q24H
     Route: 048

REACTIONS (3)
  - Drug ineffective [Unknown]
  - Somnolence [Unknown]
  - Drug effect decreased [Unknown]
